FAERS Safety Report 11983706 (Version 9)
Quarter: 2018Q2

REPORT INFORMATION
  Report Type: Spontaneous
  Country: US (occurrence: US)
  Receive Date: 20160201
  Receipt Date: 20180525
  Transmission Date: 20180711
  Serious: Yes (Hospitalization, Other)
  Sender: FDA-Public Use
  Company Number: US-PFIZER INC-2016007138

PATIENT
  Age: 78 Year
  Sex: Female
  Weight: 84 kg

DRUGS (94)
  1. CALTRATE [Concomitant]
     Active Substance: CALCIUM CARBONATE
     Dosage: 600 MG, 1X/DAY
     Route: 048
     Dates: start: 20150618
  2. CLONAZEPAM. [Concomitant]
     Active Substance: CLONAZEPAM
     Indication: ANXIETY
     Dosage: 0.25 MG EVERY MORNING AND AT 1 PM, AND 0.5 MG ONE TABLET AT BED TIME
     Route: 048
  3. ZESTORETIC [Concomitant]
     Active Substance: HYDROCHLOROTHIAZIDE\LISINOPRIL
     Dosage: 1 DF, 1X/DAY (HYDROCHLOROTHIAZIDE 12.5 MG-LISINOPRIL 10 MG) (TAKE 1 TABLET EVERY MORNING)
     Route: 048
     Dates: start: 20120319
  4. COUMADIN [Concomitant]
     Active Substance: WARFARIN SODIUM
     Dosage: 2.5 MG, ALTERNATE DAY (TAKE 1 TABLET 2.5MG EVERY OTHER DAY ALTERNATING WITH 2 MG)
     Route: 048
     Dates: start: 20160802, end: 20160808
  5. TYLENOL [Concomitant]
     Active Substance: ACETAMINOPHEN
     Indication: DISCOMFORT
     Dosage: 650 MG, AS NEEDED
     Route: 054
     Dates: start: 20150616
  6. FLEET ENEMA [Concomitant]
     Active Substance: SODIUM PHOSPHATE, DIBASIC\SODIUM PHOSPHATE, MONOBASIC
     Indication: CONSTIPATION
     Dosage: UNK, AS NEEDED (7-19 GM/118ML )
     Route: 054
     Dates: start: 20150616
  7. NORCO [Concomitant]
     Active Substance: ACETAMINOPHEN\HYDROCODONE BITARTRATE
     Indication: PAIN
     Dosage: 4 DF, AS NEEDED (HYDROCODONE-10 MG  ACETAMINOPHEN -325MG FOUR TIMES DAILY AS NEEDED)
     Route: 048
     Dates: start: 20150121
  8. FUROSEMIDE. [Concomitant]
     Active Substance: FUROSEMIDE
     Dosage: 20 MG, 2X/DAY
     Route: 048
  9. MEMANTINE. [Concomitant]
     Active Substance: MEMANTINE
     Dosage: 5 MG, 2X/DAY [DAILY AT 08:00, DAILY: AT 20:00]
     Route: 048
  10. NAMENDA [Concomitant]
     Active Substance: MEMANTINE HYDROCHLORIDE
     Dosage: 5 MG, UNK
  11. LYRICA [Suspect]
     Active Substance: PREGABALIN
     Indication: RHEUMATOID ARTHRITIS
  12. LISINOPRIL AND HYDROCHLOROTHIAZIDE [Concomitant]
     Active Substance: HYDROCHLOROTHIAZIDE\LISINOPRIL
     Dosage: 10-12.5 MG 1 TABLET EVERY MORNING
     Route: 048
  13. POTASSIUM CHLORIDE. [Concomitant]
     Active Substance: POTASSIUM CHLORIDE
     Dosage: 10 MEQ, 1X/DAY
     Route: 048
     Dates: start: 20150324
  14. VITAMIN D3 [Concomitant]
     Active Substance: CHOLECALCIFEROL
     Dosage: 1000 IU, DAILY
     Route: 048
  15. COUMADIN [Concomitant]
     Active Substance: WARFARIN SODIUM
     Dosage: 2 MG, ALTERNATE DAY (TAKE 1 TABLET EVERY OTHER DAY)
     Route: 048
     Dates: start: 20160802, end: 20160808
  16. DIAZEPAM. [Concomitant]
     Active Substance: DIAZEPAM
     Dosage: 5 MG, ONE HOUR BEFORE PROCEDURE THEN ANOTHER JUST BEFORE PROCEDURE IF NEEDED
     Route: 048
  17. VALACYCLOVIR HCL [Concomitant]
     Active Substance: VALACYCLOVIR HYDROCHLORIDE
     Dosage: 500 MG, 1X/DAY
     Route: 048
  18. LYRICA [Suspect]
     Active Substance: PREGABALIN
     Indication: NEURALGIA
     Dosage: 75 MG, 3X/DAY
     Route: 048
  19. ATORVASTATIN [Concomitant]
     Active Substance: ATORVASTATIN
     Indication: BLOOD CHOLESTEROL ABNORMAL
     Dosage: 10 MG, NIGHTLY AT BEDTIME
     Route: 048
  20. OMEPRAZOLE. [Concomitant]
     Active Substance: OMEPRAZOLE
     Indication: ABDOMINAL DISCOMFORT
     Dosage: 40 MG, 1X/DAY [DAILY AT 20:00]
     Route: 048
  21. TYLENOL [Concomitant]
     Active Substance: ACETAMINOPHEN
     Indication: DISCOMFORT
  22. MECLIZINE HCL [Concomitant]
     Active Substance: MECLIZINE HYDROCHLORIDE
     Indication: VOMITING
  23. MILK OF MAGNESIA [Concomitant]
     Active Substance: MAGNESIUM HYDROXIDE
     Indication: CONSTIPATION
     Dosage: 30 ML, AS NEEDED (30CC DAILY FOR 3 DAYS PRN)
     Route: 048
     Dates: start: 20150616
  24. ONDANSETRON HYDROCHLORIDE. [Concomitant]
     Active Substance: ONDANSETRON HYDROCHLORIDE
     Indication: NAUSEA
     Dosage: 4 MG, FOUR TIMES DAILY AS NEEDED
     Route: 048
  25. VALACYCLOVIR HCL [Concomitant]
     Active Substance: VALACYCLOVIR HYDROCHLORIDE
     Dosage: 1 G, 2X/DAY
     Route: 048
     Dates: end: 20151201
  26. TOBRADEX [Concomitant]
     Active Substance: DEXAMETHASONE\TOBRAMYCIN
     Dosage: 2 GTT, 2X/DAY (DEXAMETHASONE: 0.1%, TOBRAMYCIN: 0.3%) (PLACE 1 DROP IN EACH EYE TWICE DAILY)
     Route: 031
     Dates: start: 20160719
  27. SULFASALAZINE. [Concomitant]
     Active Substance: SULFASALAZINE
     Dosage: 1000 MG, 2X/DAY [TAKE 2 TABLETS (1000 MG) BY MOUTH TWO TIMES A DAY][DAILY AT 08:00, DAILY AT 20:00]
     Route: 048
  28. ELAVIL [Concomitant]
     Active Substance: AMITRIPTYLINE HYDROCHLORIDE
     Indication: SLEEP DISORDER
     Dosage: 10 MG, 1X/DAY
     Route: 048
     Dates: start: 20151209
  29. BACLOFEN. [Concomitant]
     Active Substance: BACLOFEN
     Indication: MUSCLE SPASMS
     Dosage: 10 MG, 3X/DAY (TAKE 1 TABLET UP TO 3 TIMES DAILY)
     Route: 048
     Dates: start: 20140828
  30. PRILOSEC [Concomitant]
     Active Substance: OMEPRAZOLE MAGNESIUM
     Indication: GASTRIC DISORDER
     Dosage: 40 MG, 1X/DAY
     Route: 048
     Dates: start: 20150903
  31. VITAMIN B12 [Concomitant]
     Active Substance: CYANOCOBALAMIN
     Dosage: 500 UG, 2X/DAY
     Route: 048
     Dates: start: 20120103
  32. COUMADIN [Concomitant]
     Active Substance: WARFARIN SODIUM
     Dosage: 2.5 MG, 1X/DAY
     Route: 048
     Dates: start: 20160808, end: 20160812
  33. COUMADIN [Concomitant]
     Active Substance: WARFARIN SODIUM
     Dosage: 3 MG, ALTERNATE DAY (TAKE 1 TABLET EVERY OTHER DAY)
     Route: 048
     Dates: start: 20160812
  34. ZYLET [Concomitant]
     Active Substance: LOTEPREDNOL ETABONATE\TOBRAMYCIN
     Dosage: 2 DF, 2X/DAY (0.3%-0.5% ML , 1 DROP INTO EACH EYE TWICE DAILY)
  35. IMODIUM A-D [Concomitant]
     Active Substance: LOPERAMIDE HYDROCHLORIDE
     Indication: DIARRHOEA
     Dosage: 2 MG, AS NEEDED (TAKE 02 TABS PRN )
     Dates: start: 20150616
  36. MECLIZINE HCL [Concomitant]
     Active Substance: MECLIZINE HYDROCHLORIDE
     Indication: NAUSEA
     Dosage: 12.5 MG, AS NEEDED (EVERY 4-6 HOURS)
     Route: 048
  37. VALTREX [Concomitant]
     Active Substance: VALACYCLOVIR HYDROCHLORIDE
     Dosage: 1 G, 2X/DAY
     Route: 048
     Dates: start: 20160719, end: 20160802
  38. AZITHROMYCIN ANHYDROUS. [Concomitant]
     Active Substance: AZITHROMYCIN ANHYDROUS
     Dosage: 250 MG, DAILY
     Route: 048
  39. ZOVIRAX [Concomitant]
     Active Substance: ACYCLOVIR
     Dosage: 400 MG, UNK
     Route: 048
  40. AMITRIPTYLINE HYDROCHLORIDE. [Concomitant]
     Active Substance: AMITRIPTYLINE HYDROCHLORIDE
     Dosage: 20 MG, 1X/DAY [TAKE 2 TABLETS (20 MG) BY MOUTH NIGHTLY, DAILY AT 20:00]
     Route: 048
  41. LIPITOR [Concomitant]
     Active Substance: ATORVASTATIN CALCIUM
     Indication: BLOOD CHOLESTEROL ABNORMAL
     Dosage: 10 MG, 1X/DAY (TAKE 1 TABLET NIGHTLY AT BEDTIME)
     Route: 048
     Dates: start: 20120719
  42. BREO ELLIPTA [Concomitant]
     Active Substance: FLUTICASONE FUROATE\VILANTEROL TRIFENATATE
     Dosage: 100-25 MCG INHALE 1 PUFF ONCE A DAY
     Route: 048
  43. FOLIC ACID. [Concomitant]
     Active Substance: FOLIC ACID
     Dosage: 2 MG, 1X/DAY [TAKE 2 TABLETS (2 MG) BY MOUTH ONCE DAILY, DAILY AT 08:00]
     Route: 048
     Dates: start: 20160609
  44. LEFLUNOMIDE. [Concomitant]
     Active Substance: LEFLUNOMIDE
     Dosage: 10 MG, 1X/DAY
     Route: 048
  45. TEMAZEPAM. [Concomitant]
     Active Substance: TEMAZEPAM
     Dosage: 30 MG, 1X/DAY AT BEDTIME
     Route: 048
  46. VITAMIN C [Concomitant]
     Active Substance: ASCORBIC ACID
     Dosage: 500 MG, 1X/DAY
     Route: 048
     Dates: start: 20120103
  47. WARFARIN SODIUM. [Concomitant]
     Active Substance: WARFARIN SODIUM
     Dosage: 2.5 MG, 1X/DAY
     Route: 048
  48. WARFARIN SODIUM. [Concomitant]
     Active Substance: WARFARIN SODIUM
     Dosage: 3 MG, DAILY
     Route: 048
  49. COUMADIN [Concomitant]
     Active Substance: WARFARIN SODIUM
     Dosage: 2 MG, 1X/DAY
     Route: 048
     Dates: start: 20160718, end: 20160802
  50. DRAMAMINE LESS DROWSY [Concomitant]
     Active Substance: MECLIZINE HYDROCHLORIDE
     Indication: NAUSEA
     Dosage: 12.5 MG, AS NEEDED (TAKE 1 TAB EVERY 4-6 HOURS PRN)
     Route: 048
     Dates: start: 20150616
  51. MYLANTA [Concomitant]
     Active Substance: ALUMINUM HYDROXIDE\DIMETHICONE\MAGNESIUM HYDROXIDE
     Indication: DYSPEPSIA
     Dosage: 30 ML, AS NEEDED (30 CC PO EVERY 4 HOURS PRN (200-200-20 MG/05 ML SUSP))
     Route: 048
  52. VALTREX [Concomitant]
     Active Substance: VALACYCLOVIR HYDROCHLORIDE
     Dosage: 1 G, 2X/DAY (1 TABLET TWICE DAILY FOR 2 WEEKS)
     Route: 048
     Dates: start: 20160802, end: 20160817
  53. PREDNISONE. [Concomitant]
     Active Substance: PREDNISONE
     Dosage: 5 MG, 1X/DAY[1 TABLET BY MOUTH DAILY] [DAILY AT 08:00]
     Route: 048
  54. ACEPHEN [Concomitant]
     Active Substance: ACETAMINOPHEN
     Indication: PYREXIA
     Dosage: 1 DF, AS NEEDED [EVERY 4 HOURS AS NEEDED ]
     Route: 054
  55. ELAVIL [Concomitant]
     Active Substance: AMITRIPTYLINE HYDROCHLORIDE
     Dosage: UNK
  56. CLONAZEPAM. [Concomitant]
     Active Substance: CLONAZEPAM
     Dosage: 1 MG, 1X/DAY [2 TABLETS (1 MG) BY MOUTH AT 8 PM, DAILY AT 20:00]
     Route: 048
  57. FOLIC ACID. [Concomitant]
     Active Substance: FOLIC ACID
     Dosage: 1 MG, 2X/DAY
     Route: 048
  58. LORAZEPAM. [Concomitant]
     Active Substance: LORAZEPAM
     Dosage: 0.5 MG, 1X/DAY
     Route: 048
  59. MAG-OX [Concomitant]
     Active Substance: MAGNESIUM OXIDE
     Dosage: 400 MG, 3X/DAY
     Route: 048
     Dates: start: 20150324
  60. METHOTREXATE. [Concomitant]
     Active Substance: METHOTREXATE
     Dosage: 0.8 ML, WEEKLY (50MG/2ML VIAL) (INJECT 0.8ML SUB-Q EVERY 7 DAYS, WITH PRESERVATIVE ONLY)
     Dates: start: 20160418
  61. TORSEMIDE. [Concomitant]
     Active Substance: TORSEMIDE
     Dosage: 10 MG, 1X/DAY EVERY MORNING
     Route: 048
  62. VITAMIN D [Concomitant]
     Active Substance: CHOLECALCIFEROL
     Dosage: 2000 IU, 1X/DAY [DAILY AT 08:00]
     Route: 048
  63. DRAMAMINE LESS DROWSY [Concomitant]
     Active Substance: MECLIZINE HYDROCHLORIDE
     Indication: VOMITING
  64. MELATONIN [Concomitant]
     Active Substance: MELATONIN
     Dosage: UNK
  65. OFLOXACIN. [Concomitant]
     Active Substance: OFLOXACIN
     Dosage: 1 GTT, 4X/DAY (1 DROP IN RIGHT EYE )
     Dates: end: 20151203
  66. ERYTHROMYCIN. [Concomitant]
     Active Substance: ERYTHROMYCIN
     Dosage: UNK UNK, 3X/DAY (APPLY 1/4 INCH RIBBON TO RIGHT EYE )
  67. FLUTICASONE PROPIONATE. [Concomitant]
     Active Substance: FLUTICASONE PROPIONATE
     Dosage: UNK UNK, 1X/DAY (USE 2 SPRAYS IN EACH NOSTRIL ONCE DAILY)
     Route: 045
  68. LASIX [Concomitant]
     Active Substance: FUROSEMIDE
     Dosage: 20 MG, 2X/DAY
     Route: 048
     Dates: start: 20160115
  69. ALBUTEROL. [Concomitant]
     Active Substance: ALBUTEROL
     Indication: DYSPNOEA
     Dosage: UNK UNK, AS NEEDED (INHALE 1 VIAL IN NEBULIZER EVERY 4 HOURS )
  70. ACYCLOVIR. [Concomitant]
     Active Substance: ACYCLOVIR
     Dosage: 400 MG, 2X/DAY [DAILY AT 8:00, DAILY AT 20:00]
     Route: 048
  71. TOBRAMYCIN AND DEXAMETHASONE [Concomitant]
     Active Substance: DEXAMETHASONE\TOBRAMYCIN
     Dosage: 1 GTT, 3X/DAY [INSTILL 1 DROP IN RIGHT EYE][DAILY AT 08:00, DAILY AT 14:00, DAILY AT 20:00][0.3 %-0.
     Route: 047
  72. LYRICA [Suspect]
     Active Substance: PREGABALIN
     Indication: OSTEOARTHRITIS
     Dosage: 100 MG, 2X/DAY (TAKE 1 CAPSULE TWICE DAILY IN THE MORNING AND AT BEDTIME)[DAILY AT 03:00, DAILY AT 2
     Route: 048
     Dates: start: 20160609
  73. KLONOPIN [Concomitant]
     Active Substance: CLONAZEPAM
     Indication: ANXIETY
     Dosage: 0.5 MG, AS NEEDED (TAKE 1 TABLET AT 1PM AND 8PM AS NEEDED)
     Route: 048
     Dates: start: 20160512
  74. ARAVA [Concomitant]
     Active Substance: LEFLUNOMIDE
     Dosage: 10 MG, 1X/DAY
     Route: 048
     Dates: start: 20120731
  75. ATIVAN [Concomitant]
     Active Substance: LORAZEPAM
     Indication: ANXIETY
     Dosage: 0.5 MG, AS NEEDED
     Route: 048
     Dates: start: 20151119
  76. METHOTREXATE. [Concomitant]
     Active Substance: METHOTREXATE
     Dosage: 2.5 MG TABLET 8 TABLETS WEEKLY ON WEDNESDAYS [AT 08:00]
     Route: 048
  77. WARFARIN SODIUM. [Concomitant]
     Active Substance: WARFARIN SODIUM
     Dosage: 3 MG, 1X/DAY [TAKE 1 TABLET BY MOUTH ONCE DAILY][DAILY AT 20:00]
     Route: 048
  78. IMODIUM A-D [Concomitant]
     Active Substance: LOPERAMIDE HYDROCHLORIDE
     Dosage: 01 TAB AFTER EACH LOOSE STOOL
     Dates: start: 20150616
  79. PREDNISONE. [Concomitant]
     Active Substance: PREDNISONE
     Indication: ARTHRITIS
     Dosage: 20 MG, DAILY
     Route: 048
  80. ARTIFICIAL TEARS [Concomitant]
     Active Substance: GLYCERIN\HYPROMELLOSES\POLYETHYLENE GLYCOL 400
     Dosage: 1 GTT, AS NEEDED (PLACE 1 DROP IN AFFECTED EYE[S] AS NEEDED)
     Route: 031
     Dates: start: 20151123
  81. HYDROCODONE/ACETAMINOPHEN [Concomitant]
     Active Substance: ACETAMINOPHEN\HYDROCODONE
     Dosage: 1 DF, 4X/DAY [HYDROCODONE 10 MG]/[ACETAMINOPHEN 325 MG][DAILY AT 02:00, DAILY: AT 08:00, DAILY: AT 1
     Route: 048
  82. LYRICA [Suspect]
     Active Substance: PREGABALIN
     Indication: FIBROMYALGIA
     Dosage: 100 MG, 3X/DAY
     Route: 048
     Dates: start: 20160331
  83. AMITRIPTYLINE HYDROCHLORIDE. [Concomitant]
     Active Substance: AMITRIPTYLINE HYDROCHLORIDE
     Indication: INSOMNIA
     Dosage: 10 MG 1 OR 2 TABLETS NIGHTLY
     Route: 048
  84. AMITRIPTYLINE HYDROCHLORIDE. [Concomitant]
     Active Substance: AMITRIPTYLINE HYDROCHLORIDE
     Dosage: 10 MG, AS NEEDED
     Route: 048
  85. CALCIUM [Concomitant]
     Active Substance: CALCIUM
     Dosage: 600 MG, 1X/DAY
     Route: 048
  86. LORAZEPAM. [Concomitant]
     Active Substance: LORAZEPAM
     Indication: ANXIETY
     Dosage: 1 MG, NIGHTLY AT BEDTIME
     Route: 048
  87. MAGNESIUM OXIDE. [Concomitant]
     Active Substance: MAGNESIUM OXIDE
     Dosage: 400 MG, 3X/DAY
     Route: 048
  88. PRILOSEC [Concomitant]
     Active Substance: OMEPRAZOLE MAGNESIUM
     Indication: GASTROOESOPHAGEAL REFLUX DISEASE
  89. VITAMIN D [Concomitant]
     Active Substance: CHOLECALCIFEROL
     Dosage: 2000 IU, DAILY
     Route: 048
     Dates: start: 20160325
  90. COUMADIN [Concomitant]
     Active Substance: WARFARIN SODIUM
     Dosage: 2.5 MG, ALTERNATE DAY (TAKE 1 TABLET EVERY OTHER DAY)
     Route: 048
     Dates: start: 20160812
  91. TYLENOL [Concomitant]
     Active Substance: ACETAMINOPHEN
     Indication: PYREXIA
     Dosage: 650 MG, AS NEEDED (325 MG TAB TAKE 2 TABS PO EVERY 04 HOURS PRN)
     Route: 048
     Dates: start: 20150616
  92. TYLENOL [Concomitant]
     Active Substance: ACETAMINOPHEN
     Indication: PYREXIA
  93. PREDNISOLONE. [Concomitant]
     Active Substance: PREDNISOLONE
     Dosage: 1 GTT, 2X/DAY (1 DROP INTO RIGHT EYE )
     Dates: end: 20151203
  94. PROVENTIL [Concomitant]
     Active Substance: ALBUTEROL
     Indication: DYSPNOEA
     Dosage: 0.083 %, AS NEEDED (0.083%, 2.5MG/3ML) (INHALE 1 VIAL IN NEBULIZER EVERY 4 HR AS NEEDED)
     Route: 045

REACTIONS (13)
  - Bronchitis [Not Recovered/Not Resolved]
  - Hypertension [Not Recovered/Not Resolved]
  - Chronic kidney disease [Not Recovered/Not Resolved]
  - Asthma [Not Recovered/Not Resolved]
  - Skin abrasion [Unknown]
  - Osteoarthritis [Unknown]
  - Sleep apnoea syndrome [Unknown]
  - Atrial fibrillation [Not Recovered/Not Resolved]
  - Dyslipidaemia [Not Recovered/Not Resolved]
  - Cardiac failure congestive [Not Recovered/Not Resolved]
  - Oedema [Unknown]
  - Gastrooesophageal reflux disease [Not Recovered/Not Resolved]
  - Laceration [Unknown]
